FAERS Safety Report 8247294-2 (Version None)
Quarter: 2012Q1

REPORT INFORMATION
  Report Type: 
  Country: None (occurrence: None)
  Receive Date: 20120329
  Receipt Date: 20120329
  Transmission Date: 20120608
  Serious: No
  Sender: FDA-Public Use
  Company Number: None

PATIENT
  Age: 49 Year
  Sex: Male

DRUGS (1)
  1. AUGMENTIN '125' [Suspect]
     Dates: start: 20100913, end: 20100925

REACTIONS (7)
  - FATIGUE [None]
  - PRURITUS [None]
  - DECREASED APPETITE [None]
  - CHOLELITHIASIS [None]
  - CHROMATURIA [None]
  - FAECES PALE [None]
  - JAUNDICE [None]
